FAERS Safety Report 17979181 (Version 1)
Quarter: 2020Q3

REPORT INFORMATION
  Report Type: Spontaneous
  Country: JP (occurrence: JP)
  Receive Date: 20200703
  Receipt Date: 20200703
  Transmission Date: 20201103
  Serious: Yes (Hospitalization)
  Sender: FDA-Public Use
  Company Number: JP-ASTRAZENECA-2020SE83352

PATIENT
  Age: 72 Year
  Sex: Female
  Weight: 42 kg

DRUGS (3)
  1. TAGRISSO [Suspect]
     Active Substance: OSIMERTINIB
     Indication: NON-SMALL CELL LUNG CANCER
     Dosage: AFTER BREAKFAST
     Route: 048
     Dates: start: 20200414, end: 20200502
  2. ROSUVASTATIN OD [Concomitant]
     Dosage: AFTER BREAKFAST
     Route: 048
     Dates: start: 2018
  3. ALFACALCIDOL [Concomitant]
     Active Substance: ALFACALCIDOL
     Dosage: AFTER BREAKFAST
     Route: 048
     Dates: start: 2018

REACTIONS (3)
  - Pleurisy [Recovered/Resolved]
  - Liver disorder [Recovered/Resolved]
  - Chronic gastritis [Unknown]

NARRATIVE: CASE EVENT DATE: 20200427
